FAERS Safety Report 10434052 (Version 1)
Quarter: 2014Q3

REPORT INFORMATION
  Report Type: Spontaneous
  Country: NL (occurrence: NL)
  Receive Date: 20140905
  Receipt Date: 20140905
  Transmission Date: 20150326
  Serious: Yes (Other)
  Sender: FDA-Public Use
  Company Number: NL-BAYER-2014-126064

PATIENT
  Age: 16 Year
  Sex: Female

DRUGS (1)
  1. ALEVE FEMINAX [Suspect]
     Active Substance: NAPROXEN SODIUM
     Indication: DYSMENORRHOEA
     Dosage: UNK
     Dates: start: 20140726, end: 20140726

REACTIONS (8)
  - Vulvovaginal pruritus [Recovered/Resolved]
  - Dermatitis allergic [Recovered/Resolved]
  - Oral pain [Recovered/Resolved]
  - Lip swelling [Recovered/Resolved]
  - Mouth ulceration [Recovered/Resolved]
  - Oral infection [None]
  - Ocular hyperaemia [None]
  - Rash macular [Recovered/Resolved]

NARRATIVE: CASE EVENT DATE: 20140726
